FAERS Safety Report 11036821 (Version 1)
Quarter: 2015Q2

REPORT INFORMATION
  Report Type: Spontaneous
  Country: US (occurrence: US)
  Receive Date: 20150416
  Receipt Date: 20150416
  Transmission Date: 20150821
  Serious: Yes (Other)
  Sender: FDA-Public Use
  Company Number: US-AMGEN-USASP2015035057

PATIENT
  Age: 82 Year
  Sex: Female

DRUGS (1)
  1. PROLIA [Suspect]
     Active Substance: DENOSUMAB
     Indication: PRODUCT USED FOR UNKNOWN INDICATION
     Dosage: UNK
     Route: 065
     Dates: start: 201407

REACTIONS (30)
  - Bladder disorder [Unknown]
  - Arthralgia [Unknown]
  - Activities of daily living impaired [Unknown]
  - Dysphagia [Unknown]
  - Nail infection [Unknown]
  - Nail disorder [Unknown]
  - Limb discomfort [Unknown]
  - Haemorrhage [Unknown]
  - Vision blurred [Unknown]
  - Malaise [Unknown]
  - Cough [Unknown]
  - Pain [Unknown]
  - Pruritus [Unknown]
  - Nail injury [Not Recovered/Not Resolved]
  - Hypertension [Unknown]
  - Infection [Unknown]
  - Hypophagia [Unknown]
  - Gait disturbance [Unknown]
  - Headache [Unknown]
  - Rash generalised [Unknown]
  - Impaired healing [Not Recovered/Not Resolved]
  - Limb injury [Not Recovered/Not Resolved]
  - Deafness [Unknown]
  - Bone pain [Unknown]
  - Lower extremity mass [Unknown]
  - Dizziness [Unknown]
  - Dysstasia [Unknown]
  - Erythema [Unknown]
  - Oesophageal disorder [Unknown]
  - Balance disorder [Unknown]

NARRATIVE: CASE EVENT DATE: 201409
